FAERS Safety Report 9860724 (Version 1)
Quarter: 2014Q1

REPORT INFORMATION
  Report Type: Spontaneous
  Country: FR (occurrence: FR)
  Receive Date: 20140202
  Receipt Date: 20140202
  Transmission Date: 20141002
  Serious: No
  Sender: FDA-Public Use
  Company Number: FR-ALLERGAN-1300756US

PATIENT
  Age: 5 Year
  Sex: Male
  Weight: 22 kg

DRUGS (2)
  1. BOTOX [Suspect]
     Indication: MUSCLE SPASTICITY
     Dosage: 80 UNITS, SINGLE
     Route: 030
     Dates: start: 20110221, end: 20110221
  2. BOTOX [Suspect]
     Dosage: 50 UNITS, SINGLE
     Route: 030
     Dates: start: 20120105, end: 20120105

REACTIONS (2)
  - Enuresis [Not Recovered/Not Resolved]
  - Enuresis [Not Recovered/Not Resolved]
